FAERS Safety Report 7719396-8 (Version None)
Quarter: 2011Q3

REPORT INFORMATION
  Report Type: 
  Country: None (occurrence: None)
  Receive Date: 20110825
  Receipt Date: 20110816
  Transmission Date: 20111222
  Serious: Yes (Life-Threatening, Hospitalization)
  Sender: FDA-Public Use
  Company Number: 2011MA012293

PATIENT
  Age: 76 Year
  Sex: Female

DRUGS (29)
  1. SENNA [Concomitant]
  2. MIDAZOLAM HCL [Concomitant]
  3. LAXIDO [Concomitant]
  4. DEXAMETHASONE [Concomitant]
  5. FUROSEMIDE [Concomitant]
  6. ENOXAPARIN [Concomitant]
  7. ACETAMINOPHEN [Concomitant]
  8. GABAPENTIN [Suspect]
     Indication: NEURALGIA
     Dosage: 300 MG;TID
     Dates: end: 20110718
  9. DIAZEPAM [Concomitant]
  10. PULMICORT [Concomitant]
  11. OXYCONTIN [Concomitant]
  12. AMOXICILLIN AND CLAVULANATE POTASSIUM [Concomitant]
  13. LANSOPRAZOLE [Concomitant]
  14. NYSTATIN [Concomitant]
  15. GLICLAZIDE [Concomitant]
  16. OXYCODONE HCL [Concomitant]
  17. EXEMESTANE [Suspect]
     Indication: BREAST CANCER
     Dates: start: 20110601, end: 20110718
  18. ALLOPURINOL [Concomitant]
  19. MS CONTIN [Concomitant]
  20. ALBUTEROL [Concomitant]
  21. AMITRIPTYLINE HCL [Concomitant]
  22. ACETAMINOPHEN AND CODEINE PHOSPHATE [Concomitant]
  23. LACTULOSE [Concomitant]
  24. MORPHINE SULFATE [Concomitant]
  25. BRICANYL [Concomitant]
  26. LORAZEPAM [Concomitant]
  27. LOPERAMIDE HCL [Concomitant]
  28. HYOSCINE HBR HYT [Concomitant]
  29. CIPROFLOXACIN [Concomitant]

REACTIONS (4)
  - LIVER DISORDER [None]
  - SEPSIS [None]
  - NEUTROPHIL COUNT DECREASED [None]
  - LEUKOPENIA [None]
